FAERS Safety Report 4918862-8 (Version None)
Quarter: 2006Q1

REPORT INFORMATION
  Report Type: 
  Country: None (occurrence: None)
  Receive Date: 20060221
  Receipt Date: 20060221
  Transmission Date: 20060701
  Serious: Yes (Life-Threatening)
  Sender: FDA-Public Use
  Company Number: None

PATIENT
  Age: 64 Year
  Sex: Male

DRUGS (2)
  1. DILTIAZEM [Suspect]
     Indication: ATRIAL FLUTTER
     Dosage: 20MG   ONCE   IV
     Route: 042
     Dates: start: 20041203, end: 20041203
  2. ADENOSINE [Suspect]
     Indication: ATRIAL FLUTTER
     Dosage: 6MG   ONCE    IV
     Route: 042
     Dates: start: 20041203, end: 20041203

REACTIONS (5)
  - ATRIAL FLUTTER [None]
  - ATRIOVENTRICULAR BLOCK COMPLETE [None]
  - BLOOD PRESSURE DECREASED [None]
  - CARDIO-RESPIRATORY ARREST [None]
  - CONDITION AGGRAVATED [None]
